FAERS Safety Report 22400244 (Version 1)
Quarter: 2023Q2

REPORT INFORMATION
  Report Type: Spontaneous
  Country: US (occurrence: None)
  Receive Date: 20230601
  Receipt Date: 20230601
  Transmission Date: 20230721
  Serious: Yes (Death)
  Sender: FDA-Public Use
  Company Number: None

PATIENT
  Age: 78 Year
  Sex: Male

DRUGS (8)
  1. DROXIDOPA [Suspect]
     Active Substance: DROXIDOPA
     Indication: Autonomic nervous system imbalance
     Route: 048
     Dates: start: 20210401, end: 20230502
  2. AZILECT [Concomitant]
     Active Substance: RASAGILINE MESYLATE
  3. AZILECT [Concomitant]
     Active Substance: RASAGILINE MESYLATE
  4. CARBIDOPA\LEVODOPA [Concomitant]
     Active Substance: CARBIDOPA\LEVODOPA
  5. COVID-19 TEST KIT SPECIMEN [Concomitant]
  6. GABAPENTIN [Concomitant]
     Active Substance: GABAPENTIN
  7. PRAMIPEXOLE [Concomitant]
     Active Substance: PRAMIPEXOLE
  8. VITAMIN D3 [Concomitant]
     Active Substance: CHOLECALCIFEROL

REACTIONS (1)
  - Death [None]

NARRATIVE: CASE EVENT DATE: 20230502
